FAERS Safety Report 11713401 (Version 4)
Quarter: 2024Q2

REPORT INFORMATION
  Report Type: Spontaneous
  Country: JP (occurrence: JP)
  Receive Date: 20151109
  Receipt Date: 20240404
  Transmission Date: 20240716
  Serious: Yes (Hospitalization, Other)
  Sender: FDA-Public Use
  Company Number: JP-ACCORD-035204

PATIENT
  Age: 66 Year
  Sex: Male
  Weight: 46.3 kg

DRUGS (7)
  1. CISPLATIN [Suspect]
     Active Substance: CISPLATIN
     Indication: Gastric cancer
  2. DOCETAXEL [Suspect]
     Active Substance: DOCETAXEL\DOCETAXEL ANHYDROUS
     Indication: Gastric cancer
  3. GIMERACIL\OTERACIL\TEGAFUR [Suspect]
     Active Substance: GIMERACIL\OTERACIL POTASSIUM\TEGAFUR
     Indication: Gastric cancer
     Dosage: ESOPHAGEAL CANCER
  4. LACTULOSE [Concomitant]
     Active Substance: LACTULOSE
     Indication: Gastrointestinal infection
  5. KANAMYCIN [Concomitant]
     Active Substance: KANAMYCIN A SULFATE
     Indication: Gastrointestinal infection
  6. AMPHOTERICIN B [Concomitant]
     Active Substance: AMPHOTERICIN B
     Indication: Gastrointestinal infection
  7. POLYMYXIN B [Concomitant]
     Active Substance: POLYMYXIN B
     Indication: Gastrointestinal infection

REACTIONS (4)
  - Disseminated intravascular coagulation [Recovered/Resolved]
  - Enteritis [Recovered/Resolved]
  - Bacterial translocation [Recovered/Resolved]
  - Septic shock [Recovered/Resolved]
